FAERS Safety Report 10812284 (Version 1)
Quarter: 2015Q1

REPORT INFORMATION
  Report Type: Spontaneous
  Country: US (occurrence: None)
  Receive Date: 20150213
  Receipt Date: 20150213
  Transmission Date: 20150721
  Serious: No
  Sender: FDA-Public Use
  Company Number: None

PATIENT
  Age: 56 Year
  Sex: Female

DRUGS (1)
  1. TARGRETIN [Suspect]
     Active Substance: BEXAROTENE
     Indication: NEOPLASM MALIGNANT
     Route: 048
     Dates: start: 20150122

REACTIONS (3)
  - Abdominal distension [None]
  - Abdominal pain upper [None]
  - Blood triglycerides increased [None]

NARRATIVE: CASE EVENT DATE: 201501
